FAERS Safety Report 20149546 (Version 1)
Quarter: 2021Q4

REPORT INFORMATION
  Report Type: Report from Study
  Country: US (occurrence: US)
  Receive Date: 20211205
  Receipt Date: 20211205
  Transmission Date: 20220303
  Serious: Yes (Hospitalization, Other)
  Sender: FDA-Public Use
  Company Number: US-ABBVIE-21K-163-4179767-00

PATIENT
  Age: 49 Year
  Sex: Female

DRUGS (5)
  1. HUMIRA [Suspect]
     Active Substance: ADALIMUMAB
     Indication: Product used for unknown indication
     Route: 058
  2. HUMIRA [Suspect]
     Active Substance: ADALIMUMAB
     Indication: Psoriatic arthropathy
     Route: 058
     Dates: start: 20210908
  3. HUMIRA [Suspect]
     Active Substance: ADALIMUMAB
     Indication: Ankylosing spondylitis
  4. PFIZER-BIONTECH COVID-19 VACCINE [Concomitant]
     Active Substance: TOZINAMERAN
     Indication: COVID-19 immunisation
     Route: 030
     Dates: start: 20210809, end: 20210809
  5. PFIZER-BIONTECH COVID-19 VACCINE [Concomitant]
     Active Substance: TOZINAMERAN
     Route: 030
     Dates: start: 20210921, end: 20210921

REACTIONS (12)
  - Abdominal pain [Unknown]
  - Abdominal distension [Unknown]
  - Constipation [Unknown]
  - Unevaluable event [Recovered/Resolved]
  - Gastritis [Recovering/Resolving]
  - Nausea [Unknown]
  - Vomiting [Unknown]
  - Headache [Unknown]
  - Gastrooesophageal reflux disease [Unknown]
  - Diarrhoea [Unknown]
  - Gastritis [Unknown]
  - Unevaluable event [Unknown]

NARRATIVE: CASE EVENT DATE: 20211011
